FAERS Safety Report 5677566-7 (Version None)
Quarter: 2008Q1

REPORT INFORMATION
  Report Type: 
  Country: None (occurrence: None)
  Receive Date: 20080318
  Receipt Date: 20080228
  Transmission Date: 20080703
  Serious: Yes (Hospitalization)
  Sender: FDA-Public Use
  Company Number: 2008S1003273

PATIENT
  Sex: Female

DRUGS (1)
  1. ENDEP (AMITRIPTYLINE HYDROCHLORIDE) (50 MG) [Suspect]
     Dosage: 50 MG; AT BEDTIME; ORAL
     Route: 048

REACTIONS (3)
  - BLOOD ELECTROLYTES ABNORMAL [None]
  - FALL [None]
  - UPPER LIMB FRACTURE [None]
